FAERS Safety Report 4471786-5 (Version None)
Quarter: 2004Q4

REPORT INFORMATION
  Report Type: 
  Country: None (occurrence: None)
  Receive Date: 20041007
  Receipt Date: 20040927
  Transmission Date: 20050328
  Serious: Yes (Death)
  Sender: FDA-Public Use
  Company Number: 2004236257IT

PATIENT
  Age: 78 Year
  Sex: Female

DRUGS (4)
  1. ETOPOSIDE [Suspect]
     Indication: DIFFUSE LARGE B-CELL LYMPHOMA
     Dosage: 100 MG, CYCLIC, (CYCLE 4), ORAL
     Route: 048
     Dates: start: 20010813, end: 20011015
  2. CYCLOPHOSPHAMIDE [Suspect]
     Indication: DIFFUSE LARGE B-CELL LYMPHOMA
     Dosage: CYCLIC (CYCLE 4), ORAL
     Route: 048
     Dates: start: 20010813, end: 20011015
  3. IDARUBICIN HCL [Suspect]
     Indication: DIFFUSE LARGE B-CELL LYMPHOMA
     Dosage: 10 MG, CYCLIC (CYCLE 4), ORAL
     Route: 048
     Dates: start: 20010813, end: 20011015
  4. DELTASONE [Suspect]
     Indication: DIFFUSE LARGE B-CELL LYMPHOMA
     Dosage: 250 MG, CYCLIC (CYCLE 4), ORAL
     Route: 048
     Dates: start: 20010813, end: 20011015

REACTIONS (1)
  - CARDIAC ARREST [None]
